FAERS Safety Report 20704870 (Version 1)
Quarter: 2022Q2

REPORT INFORMATION
  Report Type: Spontaneous
  Country: MX (occurrence: MX)
  Receive Date: 20220413
  Receipt Date: 20220413
  Transmission Date: 20220721
  Serious: Yes (Other)
  Sender: FDA-Public Use
  Company Number: MX-SA-SAC20220412000093

PATIENT
  Age: 58 Year
  Sex: Male

DRUGS (4)
  1. AMARYL [Suspect]
     Active Substance: GLIMEPIRIDE
     Route: 048
     Dates: start: 2020
  2. AMARYL [Suspect]
     Active Substance: GLIMEPIRIDE
     Dosage: 3 MG
     Route: 048
  3. AMARYL [Suspect]
     Active Substance: GLIMEPIRIDE
     Dosage: 4 MG
     Route: 048
  4. TOUJEO [Concomitant]
     Active Substance: INSULIN GLARGINE

REACTIONS (2)
  - Diabetes mellitus inadequate control [Unknown]
  - Pancreatic atrophy [Unknown]

NARRATIVE: CASE EVENT DATE: 20200101
